FAERS Safety Report 14689675 (Version 1)
Quarter: 2018Q1

REPORT INFORMATION
  Report Type: Spontaneous
  Country: US (occurrence: US)
  Receive Date: 20180327
  Receipt Date: 20180327
  Transmission Date: 20180509
  Serious: Yes (Other)
  Sender: FDA-Public Use
  Company Number: None

PATIENT
  Age: 80 Year
  Sex: Female
  Weight: 104 kg

DRUGS (1)
  1. INDOCYANINE GREEN. [Suspect]
     Active Substance: INDOCYANINE GREEN
     Indication: ANGIOGRAM
     Dosage: ?          OTHER FREQUENCY:ONE TIME;?
     Route: 042
     Dates: start: 20180326, end: 20180326

REACTIONS (8)
  - Dyspnoea [None]
  - Back pain [None]
  - Syncope [None]
  - Blood pressure increased [None]
  - Heart rate increased [None]
  - Protrusion tongue [None]
  - Unresponsive to stimuli [None]
  - Eye movement disorder [None]

NARRATIVE: CASE EVENT DATE: 20180326
